FAERS Safety Report 8037553-0 (Version None)
Quarter: 2011Q4

REPORT INFORMATION
  Report Type: 
  Country: None (occurrence: None)
  Receive Date: 20111202
  Receipt Date: 20101015
  Transmission Date: 20120403
  Serious: Yes (Life-Threatening, Hospitalization, Disabling, Other)
  Sender: FDA-Public Use
  Company Number: WAES 1010USA01868

PATIENT
  Age: 66 Year
  Sex: Female

DRUGS (6)
  1. LIPITOR [Concomitant]
  2. VITAMINS (UNSPECIFIED) [Concomitant]
  3. ALLEGRA [Concomitant]
  4. FOSAMAX [Suspect]
     Indication: OSTEOPOROSIS
     Dosage: 70 MG/WKY/PO
     Route: 048
     Dates: end: 20100401
  5. LISINOPRIL [Concomitant]
  6. CALCIUM CARBONATE [Concomitant]

REACTIONS (1)
  - FEMUR FRACTURE [None]
